FAERS Safety Report 5168533-0 (Version None)
Quarter: 2006Q4

REPORT INFORMATION
  Report Type: 
  Country: None (occurrence: None)
  Receive Date: 20061208
  Receipt Date: 20061129
  Transmission Date: 20070319
  Serious: Yes (Death, Hospitalization, Other)
  Sender: FDA-Public Use
  Company Number: BR-ABBOTT-06P-020-0352308-00

PATIENT
  Sex: Male
  Weight: 78 kg

DRUGS (3)
  1. HUMIRA [Suspect]
     Indication: RHEUMATOID ARTHRITIS
     Route: 058
     Dates: end: 20060501
  2. FEXOFENADINE HYDROCHLORIDE [Concomitant]
     Indication: INFECTION
  3. METHOTREXATE [Concomitant]
     Indication: DRUG USE FOR UNKNOWN INDICATION

REACTIONS (6)
  - ARTHRITIS [None]
  - CENTRAL NERVOUS SYSTEM LYMPHOMA [None]
  - DRUG INEFFECTIVE [None]
  - FALL [None]
  - IMMUNODEFICIENCY [None]
  - INFECTION [None]
